FAERS Safety Report 13407454 (Version 1)
Quarter: 2017Q2

REPORT INFORMATION
  Report Type: Spontaneous
  Country: FR (occurrence: FR)
  Receive Date: 20170405
  Receipt Date: 20170405
  Transmission Date: 20170830
  Serious: Yes (Hospitalization, Other)
  Sender: FDA-Public Use
  Company Number: FR-ELI_LILLY_AND_COMPANY-FR201703009972

PATIENT
  Age: 67 Year
  Sex: Female

DRUGS (5)
  1. ZYPREXA [Suspect]
     Active Substance: OLANZAPINE
     Indication: MANIA
     Dosage: 0.5 DF, QD
     Route: 048
     Dates: start: 201611
  2. THERALENE [Concomitant]
     Active Substance: TRIMEPRAZINE
     Dosage: 15 DF, UNKNOWN
  3. STILNOX [Concomitant]
     Active Substance: ZOLPIDEM TARTRATE
     Dosage: 10 MG, QD
  4. SERESTA [Concomitant]
     Active Substance: OXAZEPAM
     Dosage: UNK, UNKNOWN
  5. ABSTRAL [Concomitant]
     Active Substance: FENTANYL CITRATE
     Dosage: 4 DF, QD

REACTIONS (11)
  - Chest pain [Unknown]
  - Troponin increased [Unknown]
  - Fibrin D dimer increased [Unknown]
  - C-reactive protein increased [Unknown]
  - Chest discomfort [Unknown]
  - White blood cell count increased [Unknown]
  - Wrong technique in product usage process [Unknown]
  - Arteriosclerosis coronary artery [Unknown]
  - Dyspnoea [Unknown]
  - N-terminal prohormone brain natriuretic peptide increased [Unknown]
  - Atrioventricular block first degree [Not Recovered/Not Resolved]

NARRATIVE: CASE EVENT DATE: 201611
